FAERS Safety Report 8228396-3 (Version None)
Quarter: 2012Q1

REPORT INFORMATION
  Report Type: 
  Country: None (occurrence: None)
  Receive Date: 20120322
  Receipt Date: 20110912
  Transmission Date: 20120608
  Serious: No
  Sender: FDA-Public Use
  Company Number: US-BRISTOL-MYERS SQUIBB COMPANY-15932817

PATIENT
  Age: 68 Year
  Sex: Female

DRUGS (2)
  1. FLUOROURACIL [Suspect]
     Dates: start: 20110101
  2. ERBITUX [Suspect]
     Indication: COLORECTAL CANCER METASTATIC
     Dates: start: 20110324

REACTIONS (1)
  - CHEST PAIN [None]
